FAERS Safety Report 12970775 (Version 3)
Quarter: 2017Q3

REPORT INFORMATION
  Report Type: Spontaneous
  Country: US (occurrence: US)
  Receive Date: 20161123
  Receipt Date: 20170808
  Transmission Date: 20171127
  Serious: Yes (Hospitalization)
  Sender: FDA-Public Use
  Company Number: US-ACTELION-A-US2016-146009

PATIENT
  Age: 71 Year
  Sex: Female

DRUGS (21)
  1. VIGAMOX [Concomitant]
     Active Substance: MOXIFLOXACIN HYDROCHLORIDE
  2. IRBESARTAN. [Concomitant]
     Active Substance: IRBESARTAN
  3. TRACLEER [Suspect]
     Active Substance: BOSENTAN
     Indication: PULMONARY HYPERTENSION
     Dosage: 125 MG, UNK
     Route: 048
     Dates: start: 20160920
  4. METFORMIN [Concomitant]
     Active Substance: METFORMIN HYDROCHLORIDE
     Indication: ESSENTIAL HYPERTENSION
  5. MELOXICAM. [Concomitant]
     Active Substance: MELOXICAM
  6. DULOXETINE. [Concomitant]
     Active Substance: DULOXETINE
  7. AZITHROMYCIN ANHYDROUS. [Concomitant]
     Active Substance: AZITHROMYCIN ANHYDROUS
  8. LISINOPRIL. [Concomitant]
     Active Substance: LISINOPRIL
  9. TRAMADOL. [Concomitant]
     Active Substance: TRAMADOL
  10. HYDROCHLOROTHIAZIDE. [Concomitant]
     Active Substance: HYDROCHLOROTHIAZIDE
  11. DULOXETINE HCL [Concomitant]
     Active Substance: DULOXETINE HYDROCHLORIDE
  12. PREDNISOLONE. [Concomitant]
     Active Substance: PREDNISOLONE
  13. FUROSEMIDE. [Concomitant]
     Active Substance: FUROSEMIDE
  14. GABAPENTIN. [Concomitant]
     Active Substance: GABAPENTIN
  15. VICTOZA [Concomitant]
     Active Substance: LIRAGLUTIDE
  16. POTASSIUM CHLORIDE. [Concomitant]
     Active Substance: POTASSIUM CHLORIDE
  17. URSODIOL. [Concomitant]
     Active Substance: URSODIOL
  18. SILDENAFIL. [Concomitant]
     Active Substance: SILDENAFIL
     Indication: PULMONARY ARTERIAL HYPERTENSION
     Dosage: 20 MG, UNK
  19. CRESTOR [Concomitant]
     Active Substance: ROSUVASTATIN CALCIUM
  20. LANTUS [Concomitant]
     Active Substance: INSULIN GLARGINE
  21. METOPROLOL. [Concomitant]
     Active Substance: METOPROLOL

REACTIONS (2)
  - Myocardial infarction [Unknown]
  - Coronary artery bypass [Recovering/Resolving]
